FAERS Safety Report 4505390-7 (Version None)
Quarter: 2004Q4

REPORT INFORMATION
  Report Type: 
  Country: None (occurrence: None)
  Receive Date: 20041118
  Receipt Date: 20041118
  Transmission Date: 20050328
  Serious: Yes (Hospitalization)
  Sender: FDA-Public Use
  Company Number: None

PATIENT
  Age: 50 Year
  Sex: Male

DRUGS (6)
  1. FUROSEMIDE [Suspect]
     Dosage: 40 MG DAILY ORAL
     Route: 048
     Dates: start: 20040421, end: 20040501
  2. BENAZEPRIL HCL [Concomitant]
  3. LOTENSIN [Concomitant]
  4. GLYBURIDE [Concomitant]
  5. PIOGLITAZONE HCL [Concomitant]
  6. ACTOS [Concomitant]

REACTIONS (6)
  - BLOOD PRESSURE ORTHOSTATIC [None]
  - DIZZINESS [None]
  - FLUSHING [None]
  - HOT FLUSH [None]
  - NAUSEA [None]
  - PULSE ABNORMAL [None]
